FAERS Safety Report 6312504-5 (Version None)
Quarter: 2009Q3

REPORT INFORMATION
  Report Type: 
  Country: None (occurrence: None)
  Receive Date: 20090813
  Receipt Date: 20090806
  Transmission Date: 20100115
  Serious: Yes (Other)
  Sender: FDA-Public Use
  Company Number: IMP_04529_2009

PATIENT
  Age: 39 Year
  Sex: Female

DRUGS (2)
  1. CLARITIN-D [Suspect]
     Indication: MULTIPLE ALLERGIES
     Dosage: (DF)
     Dates: start: 20090801
  2. NASONEX [Concomitant]

REACTIONS (3)
  - FEELING ABNORMAL [None]
  - FEELING HOT [None]
  - PALPITATIONS [None]
